FAERS Safety Report 4866854-X (Version None)
Quarter: 2005Q4

REPORT INFORMATION
  Report Type: 
  Country: None (occurrence: None)
  Receive Date: 20051222
  Receipt Date: 20051125
  Transmission Date: 20060501
  Serious: Yes (Death, Hospitalization)
  Sender: FDA-Public Use
  Company Number: FI200511003174

PATIENT
  Age: 74 Year
  Sex: Female

DRUGS (4)
  1. ZYPREXA [Suspect]
     Indication: SCHIZOPHRENIA
  2. ORSANIL (THIORIDAZINE HYDROCHLORIDE) [Concomitant]
  3. SEROQUEL [Concomitant]
  4. STESOLID (DIAZEPAM) [Concomitant]

REACTIONS (10)
  - BEDRIDDEN [None]
  - BLOOD GLUCOSE INCREASED [None]
  - CATATONIA [None]
  - CLOSTRIDIUM COLITIS [None]
  - ENTERITIS [None]
  - GENERAL PHYSICAL HEALTH DETERIORATION [None]
  - NEUROLEPTIC MALIGNANT SYNDROME [None]
  - PNEUMONIA [None]
  - URINE OUTPUT DECREASED [None]
  - VASCULITIS [None]
